FAERS Safety Report 7637120-4 (Version None)
Quarter: 2011Q3

REPORT INFORMATION
  Report Type: 
  Country: None (occurrence: None)
  Receive Date: 20110726
  Receipt Date: 20110711
  Transmission Date: 20111222
  Serious: Yes (Other)
  Sender: FDA-Public Use
  Company Number: GB-ARROW GEN-2011-11169

PATIENT
  Age: 39 Year
  Sex: Female

DRUGS (5)
  1. PREDNISONE [Suspect]
     Indication: SARCOIDOSIS
     Dosage: 20 MG, UNK
  2. METFORMIN HCL [Suspect]
     Indication: BLOOD GLUCOSE INCREASED
     Dosage: UNK
     Route: 048
  3. GLICLAZIDE (UNKNOWN) [Suspect]
     Indication: BLOOD GLUCOSE INCREASED
     Dosage: UNK
     Route: 048
  4. INSULIN [Suspect]
     Indication: DIABETES MELLITUS
     Dosage: UNK
  5. EXENATIDE [Suspect]
     Indication: HYPERGLYCAEMIA
     Dosage: UNK

REACTIONS (4)
  - BLOOD GLUCOSE INCREASED [None]
  - WEIGHT INCREASED [None]
  - DIABETES MELLITUS [None]
  - LACTIC ACIDOSIS [None]
